FAERS Safety Report 8436614-1 (Version None)
Quarter: 2012Q2

REPORT INFORMATION
  Report Type: 
  Country: None (occurrence: None)
  Receive Date: 20120614
  Receipt Date: 20120530
  Transmission Date: 20120825
  Serious: Yes (Hospitalization)
  Sender: FDA-Public Use
  Company Number: RU-GLAXOSMITHKLINE-B0805316A

PATIENT
  Age: 43 Year
  Sex: Female

DRUGS (2)
  1. KETOPROFEN [Suspect]
     Indication: PRODUCT USED FOR UNKNOWN INDICATION
     Route: 061
     Dates: start: 20120519, end: 20120520
  2. CUTIVATE [Suspect]
     Indication: DERMATITIS ALLERGIC
     Route: 061
     Dates: start: 20120521, end: 20120521

REACTIONS (3)
  - BURNING SENSATION [None]
  - APPLICATION SITE EROSION [None]
  - BLISTER [None]
